FAERS Safety Report 8046401-4 (Version None)
Quarter: 2012Q1

REPORT INFORMATION
  Report Type: 
  Country: None (occurrence: None)
  Receive Date: 20120113
  Receipt Date: 20120103
  Transmission Date: 20120608
  Serious: Yes (Hospitalization, Other)
  Sender: FDA-Public Use
  Company Number: FR-ASTRAZENECA-2011SE61425

PATIENT
  Age: 29540 Day
  Sex: Female
  Weight: 45 kg

DRUGS (10)
  1. ALENDRONATE SODIUM [Concomitant]
     Route: 048
  2. PAROXETINE [Concomitant]
     Route: 048
  3. IRESSA [Suspect]
     Indication: BRONCHIAL CARCINOMA
     Route: 048
     Dates: start: 20110415, end: 20111004
  4. IRBESARTAN [Concomitant]
     Route: 048
  5. DOMPERIDONE [Concomitant]
     Route: 048
  6. ACETAMINOPHEN [Concomitant]
     Route: 048
  7. PRAZEPAM [Concomitant]
     Route: 048
  8. INDAPAMIDE [Concomitant]
     Route: 048
  9. BISOPROLOL FUMARATE [Concomitant]
     Route: 048
  10. XALATAN [Concomitant]
     Route: 047

REACTIONS (2)
  - OFF LABEL USE [None]
  - PEPTIC ULCER PERFORATION, OBSTRUCTIVE [None]
